FAERS Safety Report 15596138 (Version 1)
Quarter: 2018Q4

REPORT INFORMATION
  Report Type: Spontaneous
  Country: US (occurrence: US)
  Receive Date: 20181107
  Receipt Date: 20181107
  Transmission Date: 20190205
  Serious: No
  Sender: FDA-Public Use
  Company Number: US-SA-2018SA304640

PATIENT
  Age: 87 Year
  Sex: Female
  Weight: 66.21 kg

DRUGS (1)
  1. ASPERCREME WITH LIDOCAINE [Suspect]
     Active Substance: LIDOCAINE
     Dosage: UNK
     Dates: start: 2018

REACTIONS (1)
  - Blister [Unknown]

NARRATIVE: CASE EVENT DATE: 20181009
